FAERS Safety Report 6149735-3 (Version None)
Quarter: 2009Q2

REPORT INFORMATION
  Report Type: 
  Country: None (occurrence: None)
  Receive Date: 20090407
  Receipt Date: 20090407
  Transmission Date: 20091009
  Serious: Yes (Hospitalization)
  Sender: FDA-Public Use
  Company Number: None

PATIENT
  Sex: Female
  Weight: 57 kg

DRUGS (3)
  1. CIPRO [Suspect]
     Indication: UROSEPSIS
     Dosage: 400 MG BID IV
     Route: 042
     Dates: start: 20090311, end: 20090325
  2. NEXIUM [Suspect]
     Indication: GASTROINTESTINAL DISORDER
     Dosage: 40 MG DAILY IV
     Route: 042
     Dates: start: 20090311, end: 20090325
  3. NEXIUM [Suspect]
     Indication: PROPHYLAXIS
     Dosage: 40 MG DAILY IV
     Route: 042
     Dates: start: 20090311, end: 20090325

REACTIONS (1)
  - TUBULOINTERSTITIAL NEPHRITIS [None]
